FAERS Safety Report 9452837 (Version 33)
Quarter: 2022Q1

REPORT INFORMATION
  Report Type: Spontaneous
  Country: GB (occurrence: GB)
  Receive Date: 20130812
  Receipt Date: 20220303
  Transmission Date: 20220423
  Serious: Yes (Life-Threatening, Hospitalization, Disabling, Congenital Anomaly, Other)
  Sender: FDA-Public Use
  Company Number: None

PATIENT
  Age: 1 Hour
  Sex: Female
  Weight: 2.2 kg

DRUGS (38)
  1. INTELENCE [Suspect]
     Active Substance: ETRAVIRINE
     Indication: HIV infection
     Route: 064
     Dates: start: 20081023
  2. INTELENCE [Suspect]
     Active Substance: ETRAVIRINE
     Route: 064
     Dates: end: 20081023
  3. INTELENCE [Suspect]
     Active Substance: ETRAVIRINE
     Route: 064
     Dates: start: 20081023
  4. INTELENCE [Suspect]
     Active Substance: ETRAVIRINE
     Route: 064
     Dates: start: 20081023
  5. INTELENCE [Suspect]
     Active Substance: ETRAVIRINE
     Route: 064
  6. PREZISTA [Suspect]
     Active Substance: DARUNAVIR ETHANOLATE
     Indication: HIV infection
     Dosage: CUMULATIVE DOSE WAS 145250?1200 MG. CUMULATIVE DOSE TO FIRST REACTION 157200.0
     Route: 064
     Dates: start: 20081023
  7. PREZISTA [Suspect]
     Active Substance: DARUNAVIR ETHANOLATE
     Route: 064
  8. NORVIR [Suspect]
     Active Substance: RITONAVIR
     Indication: HIV infection
     Dosage: 16 MONTHS?CHANGE OF DOSE AT 18 1/2 WEEKS
     Route: 064
  9. NORVIR [Suspect]
     Active Substance: RITONAVIR
     Route: 064
     Dates: start: 20060905, end: 20081022
  10. NORVIR [Suspect]
     Active Substance: RITONAVIR
     Dosage: 18 1/2 WEEKS TO DELIVERY?CUMULATIVE DOSE WAS 360016.656,
     Route: 064
     Dates: start: 20081023
  11. NORVIR [Suspect]
     Active Substance: RITONAVIR
     Route: 064
  12. NORVIR [Suspect]
     Active Substance: RITONAVIR
     Route: 064
     Dates: start: 20060905, end: 20081022
  13. ISENTRESS [Suspect]
     Active Substance: RALTEGRAVIR POTASSIUM
     Indication: HIV infection
     Route: 064
     Dates: start: 20081023, end: 20090221
  14. ISENTRESS [Suspect]
     Active Substance: RALTEGRAVIR POTASSIUM
     Dosage: 4 MONTHS
     Route: 064
  15. ISENTRESS [Suspect]
     Active Substance: RALTEGRAVIR POTASSIUM
     Dosage: GESTATION PERIOD?18 (WEEKS)
     Route: 064
  16. ISENTRESS [Suspect]
     Active Substance: RALTEGRAVIR POTASSIUM
     Dosage: BID. CUMULATIVE DOSE TO FIRST REACTION 104800
     Route: 064
  17. APTIVUS [Suspect]
     Active Substance: TIPRANAVIR
     Indication: HIV infection
     Dosage: 2 YEARS
     Route: 064
     Dates: start: 20060905, end: 20081023
  18. APTIVUS [Suspect]
     Active Substance: TIPRANAVIR
     Route: 064
     Dates: start: 20070605, end: 200810
  19. TRUVADA [Suspect]
     Active Substance: EMTRICITABINE\TENOFOVIR DISOPROXIL FUMARATE
     Indication: HIV infection
     Dosage: 16 MONTHS
     Route: 064
     Dates: start: 20070605, end: 20081023
  20. TRUVADA [Suspect]
     Active Substance: EMTRICITABINE\TENOFOVIR DISOPROXIL FUMARATE
     Route: 064
     Dates: start: 20070905, end: 20081023
  21. TRUVADA [Suspect]
     Active Substance: EMTRICITABINE\TENOFOVIR DISOPROXIL FUMARATE
     Route: 064
  22. ZIDOVUDINE [Suspect]
     Active Substance: ZIDOVUDINE
     Indication: HIV infection
     Route: 064
  23. ZIDOVUDINE [Suspect]
     Active Substance: ZIDOVUDINE
     Route: 064
  24. TIPRANAVIR [Suspect]
     Active Substance: TIPRANAVIR
     Indication: Product used for unknown indication
     Route: 064
     Dates: start: 20060605, end: 200810
  25. PREDNISOLONE [Concomitant]
     Active Substance: PREDNISOLONE
     Indication: Product used for unknown indication
     Route: 064
  26. PREDNISOLONE [Concomitant]
     Active Substance: PREDNISOLONE
     Route: 064
  27. NOVORAPID [Concomitant]
     Active Substance: INSULIN ASPART
     Indication: Gestational diabetes
     Route: 064
  28. NOVORAPID [Concomitant]
     Active Substance: INSULIN ASPART
     Route: 064
     Dates: end: 20091022
  29. NOVORAPID [Concomitant]
     Active Substance: INSULIN ASPART
     Route: 064
  30. NOVORAPID [Concomitant]
     Active Substance: INSULIN ASPART
     Dosage: 200 MG, BID
     Route: 064
     Dates: end: 20091022
  31. NOVORAPID [Concomitant]
     Active Substance: INSULIN ASPART
     Route: 064
  32. INSULIN NOS [Concomitant]
     Active Substance: INSULIN NOS
     Indication: Gestational diabetes
     Route: 064
  33. INSULIN NOS [Concomitant]
     Active Substance: INSULIN NOS
     Route: 064
  34. NITROUS OXIDE [Concomitant]
     Active Substance: NITROUS OXIDE
     Indication: Anencephaly
     Route: 064
  35. NITROUS OXIDE [Concomitant]
     Active Substance: NITROUS OXIDE
     Route: 064
  36. ENFUVIRTIDE [Concomitant]
     Active Substance: ENFUVIRTIDE
     Route: 064
  37. ENFUVIRTIDE [Concomitant]
     Active Substance: ENFUVIRTIDE
     Route: 064
  38. OXYGEN [Concomitant]
     Active Substance: OXYGEN
     Indication: Product used for unknown indication
     Route: 064

REACTIONS (36)
  - Genitalia external ambiguous [Recovered/Resolved with Sequelae]
  - Gastrointestinal malformation [Unknown]
  - Erythema [Recovered/Resolved]
  - Umbilical cord abnormality [Recovered/Resolved with Sequelae]
  - Congenital anomaly [Unknown]
  - Blood iron decreased [Recovered/Resolved]
  - Cloacal exstrophy [Recovered/Resolved with Sequelae]
  - Bladder agenesis [Recovered/Resolved with Sequelae]
  - Meconium stain [Recovered/Resolved with Sequelae]
  - Gastrointestinal disorder congenital [Unknown]
  - Meningomyelocele [Recovered/Resolved with Sequelae]
  - Musculoskeletal discomfort [Recovered/Resolved with Sequelae]
  - Tethered cord syndrome [Recovered/Resolved with Sequelae]
  - Exomphalos [Recovered/Resolved with Sequelae]
  - Musculoskeletal deformity [Recovered/Resolved with Sequelae]
  - Spina bifida [Unknown]
  - Anencephaly [Unknown]
  - Congenital ectopic bladder [Unknown]
  - Neural tube defect [Unknown]
  - Congenital musculoskeletal anomaly [Recovered/Resolved]
  - Sepsis neonatal [Recovered/Resolved]
  - Congenital genital malformation [Recovered/Resolved with Sequelae]
  - Lipodystrophy acquired [Not Recovered/Not Resolved]
  - Fibrosis [Unknown]
  - Anal atresia [Recovered/Resolved with Sequelae]
  - Spine malformation [Recovered/Resolved with Sequelae]
  - Spine malformation [Recovered/Resolved with Sequelae]
  - Lipodystrophy acquired [Unknown]
  - Caudal regression syndrome [Recovered/Resolved with Sequelae]
  - Exomphalos [Recovered/Resolved with Sequelae]
  - Umbilical cord abnormality [Unknown]
  - Musculoskeletal discomfort [Recovered/Resolved with Sequelae]
  - Sepsis [Recovered/Resolved]
  - Gastrointestinal disorder congenital [Unknown]
  - Foetal exposure during pregnancy [Recovered/Resolved]
  - Premature baby [Recovered/Resolved]

NARRATIVE: CASE EVENT DATE: 20080614
